FAERS Safety Report 4748475-2 (Version None)
Quarter: 2005Q3

REPORT INFORMATION
  Report Type: 
  Country: None (occurrence: None)
  Receive Date: 20050817
  Receipt Date: 20050808
  Transmission Date: 20060218
  Serious: Yes (Other)
  Sender: FDA-Public Use
  Company Number: CHPA2005US01711

PATIENT
  Age: 29 Year
  Sex: Female
  Weight: 52.2 kg

DRUGS (6)
  1. TRANSDERM SCOP [Suspect]
     Indication: DIZZINESS
     Dosage: SEE IMAGE
     Route: 062
     Dates: start: 20040923, end: 20041130
  2. TRANSDERM SCOP [Suspect]
     Indication: DIZZINESS
     Dosage: SEE IMAGE
     Route: 062
     Dates: start: 20041101, end: 20041201
  3. VALIUM [Suspect]
     Dosage: SEE IMAGE
     Route: 048
  4. VALIUM [Suspect]
     Dosage: SEE IMAGE
     Route: 048
  5. NEXIUM [Concomitant]
  6. ZELNORM /USA/ (TEGASEROD) [Concomitant]

REACTIONS (7)
  - COMPLICATIONS OF MATERNAL EXPOSURE TO THERAPEUTIC DRUGS [None]
  - DEHYDRATION [None]
  - DRUG DEPENDENCE [None]
  - MOTION SICKNESS [None]
  - NAUSEA [None]
  - PREGNANCY [None]
  - VOMITING [None]
